FAERS Safety Report 10797542 (Version 1)
Quarter: 2015Q1

REPORT INFORMATION
  Report Type: Spontaneous
  Country: BR (occurrence: BR)
  Receive Date: 20150216
  Receipt Date: 20150216
  Transmission Date: 20150721
  Serious: Yes (Other)
  Sender: FDA-Public Use
  Company Number: BR-MYLANLABS-2015M1004453

PATIENT

DRUGS (2)
  1. PIPERACILLIN/TAZOBACTAM [Suspect]
     Active Substance: PIPERACILLIN SODIUM\TAZOBACTAM SODIUM
     Dosage: 2 G/250 MG IN EVERY 6 HOURS
     Route: 042
  2. NEPECEF [Suspect]
     Active Substance: CEFEPIME HYDROCHLORIDE
     Indication: PNEUMONIA
     Dosage: 1 G AFTER EACH HAEMODIALYSIS SESSION
     Route: 065

REACTIONS (2)
  - Haemodialysis [None]
  - Neurotoxicity [Recovered/Resolved]
